FAERS Safety Report 25452774 (Version 1)
Quarter: 2025Q2

REPORT INFORMATION
  Report Type: Report from Study
  Country: SE (occurrence: SE)
  Receive Date: 20250618
  Receipt Date: 20250618
  Transmission Date: 20250717
  Serious: Yes (Congenital Anomaly, Other)
  Sender: UCB
  Company Number: SE-UCBSA-2025036574

PATIENT

DRUGS (1)
  1. LEVETIRACETAM [Suspect]
     Active Substance: LEVETIRACETAM
     Indication: Product used for unknown indication
     Dosage: 750 MILLIGRAM, ONCE DAILY (QD)
     Route: 064

REACTIONS (2)
  - Congenital aortic anomaly [Unknown]
  - Maternal exposure during pregnancy [Unknown]
